FAERS Safety Report 7741882-5 (Version None)
Quarter: 2011Q3

REPORT INFORMATION
  Report Type: 
  Country: None (occurrence: None)
  Receive Date: 20110912
  Receipt Date: 20110830
  Transmission Date: 20111222
  Serious: Yes (Other)
  Sender: FDA-Public Use
  Company Number: DE-JNJFOC-20110901171

PATIENT
  Sex: Female
  Weight: 48 kg

DRUGS (1)
  1. USTEKINUMAB [Suspect]
     Indication: PSORIASIS
     Route: 058
     Dates: start: 20100324

REACTIONS (1)
  - ACCELERATED HYPERTENSION [None]
